FAERS Safety Report 13181628 (Version 1)
Quarter: 2017Q1

REPORT INFORMATION
  Report Type: Spontaneous
  Country: IT (occurrence: IT)
  Receive Date: 20170202
  Receipt Date: 20170202
  Transmission Date: 20170428
  Serious: Yes (Other)
  Sender: FDA-Public Use
  Company Number: IT-MYLANLABS-2017M1005696

PATIENT

DRUGS (1)
  1. FROBEN GOLA 0,25% SPRAY PER MUCOSA ORALE [Suspect]
     Active Substance: FLURBIPROFEN
     Indication: PRODUCT USED FOR UNKNOWN INDICATION
     Dosage: UNK

REACTIONS (4)
  - Asthmatic crisis [Unknown]
  - Choking [Unknown]
  - Product odour abnormal [None]
  - Product quality issue [Unknown]
